FAERS Safety Report 23970069 (Version 1)
Quarter: 2024Q2

REPORT INFORMATION
  Report Type: Report from Study
  Country: JP (occurrence: JP)
  Receive Date: 20240613
  Receipt Date: 20240613
  Transmission Date: 20240716
  Serious: Yes (Other)
  Sender: FDA-Public Use
  Company Number: JP-RECORDATI RARE DISEASE INC.-2021004684

PATIENT

DRUGS (11)
  1. NEOPROFEN [Suspect]
     Active Substance: IBUPROFEN LYSINE
     Indication: Patent ductus arteriosus
     Dosage: 20 MILLIGRAM
     Route: 042
     Dates: start: 20210903, end: 20210903
  2. NEOPROFEN [Suspect]
     Active Substance: IBUPROFEN LYSINE
     Dosage: 10 MILLIGRAM
     Route: 042
     Dates: start: 20210904, end: 20210904
  3. NEOPROFEN [Suspect]
     Active Substance: IBUPROFEN LYSINE
     Dosage: 10 MILLIGRAM
     Route: 042
     Dates: start: 20210905, end: 20210905
  4. NEOPROFEN [Suspect]
     Active Substance: IBUPROFEN LYSINE
     Dosage: 21 MILLIGRAM
     Route: 042
     Dates: start: 20210911, end: 20210911
  5. NEOPROFEN [Suspect]
     Active Substance: IBUPROFEN LYSINE
     Dosage: 11 MILLIGRAM
     Route: 042
     Dates: start: 20210913, end: 20210913
  6. NEOPROFEN [Suspect]
     Active Substance: IBUPROFEN LYSINE
     Dosage: 11 MILLIGRAM
     Route: 042
     Dates: start: 20210914, end: 20210914
  7. LEVOFLOXACIN [Concomitant]
     Active Substance: LEVOFLOXACIN
     Indication: Inclusion conjunctivitis neonatal
     Dosage: UNK UNK, UNK
     Route: 065
     Dates: start: 20210831, end: 20210914
  8. LEVOFLOXACIN [Concomitant]
     Active Substance: LEVOFLOXACIN
     Indication: Infection prophylaxis
  9. FUROSEMIDE [Concomitant]
     Active Substance: FUROSEMIDE
     Indication: Cardiac failure acute
     Dosage: UNK UNK, UNK
     Route: 042
     Dates: start: 20210905, end: 20210905
  10. MENATETRENONE [Concomitant]
     Active Substance: MENATETRENONE
     Indication: Coagulation factor deficiency
     Dosage: UNK UNK, UNK
     Route: 042
     Dates: start: 20210905, end: 20210915
  11. PETROLATUM [Concomitant]
     Active Substance: PETROLATUM
     Indication: Skin disorder
     Dosage: UNK UNK, UNK
     Route: 003
     Dates: start: 20210914, end: 20210928

REACTIONS (3)
  - Cardiac failure acute [Recovering/Resolving]
  - Hyperkalaemia [Recovering/Resolving]
  - Urine output decreased [Recovering/Resolving]

NARRATIVE: CASE EVENT DATE: 20210905
